FAERS Safety Report 17741478 (Version 2)
Quarter: 2020Q2

REPORT INFORMATION
  Report Type: Report from Study
  Country: GB (occurrence: GB)
  Receive Date: 20200504
  Receipt Date: 20200508
  Transmission Date: 20200714
  Serious: Yes (Other)
  Sender: FDA-Public Use
  Company Number: GB-IPSEN BIOPHARMACEUTICALS, INC.-2020-07982

PATIENT
  Sex: Female

DRUGS (2)
  1. SOMATULINE AUTOGEL [Suspect]
     Active Substance: LANREOTIDE ACETATE
     Indication: NEUROENDOCRINE TUMOUR
     Route: 058
  2. ERYTHROMYCIN. [Suspect]
     Active Substance: ERYTHROMYCIN
     Indication: CELLULITIS

REACTIONS (4)
  - Diarrhoea [Recovering/Resolving]
  - Abdominal pain [Recovering/Resolving]
  - Off label use [Unknown]
  - Cellulitis [Unknown]
